FAERS Safety Report 16936614 (Version 1)
Quarter: 2019Q4

REPORT INFORMATION
  Report Type: Spontaneous
  Country: US (occurrence: US)
  Receive Date: 20191018
  Receipt Date: 20191018
  Transmission Date: 20200122
  Serious: Yes (Hospitalization, Other)
  Sender: FDA-Public Use
  Company Number: US-BAYER-2019-185559

PATIENT
  Age: 34 Year
  Sex: Female

DRUGS (1)
  1. SKYLA [Suspect]
     Active Substance: LEVONORGESTREL
     Indication: CONTRACEPTION
     Dosage: 14 MCG/24HR, CONT
     Route: 015
     Dates: start: 20180119

REACTIONS (15)
  - Ruptured ectopic pregnancy [Recovering/Resolving]
  - Vaginal haemorrhage [Recovering/Resolving]
  - Abdominal pain [Recovering/Resolving]
  - Pyrexia [Recovering/Resolving]
  - Peritoneal haemorrhage [Recovering/Resolving]
  - Diarrhoea [None]
  - Ectopic pregnancy with contraceptive device [Recovering/Resolving]
  - Abortion incomplete [None]
  - Drug ineffective [None]
  - Pain [Recovering/Resolving]
  - Abdominal pain lower [Recovered/Resolved]
  - Polycystic ovaries [None]
  - Infection [Recovering/Resolving]
  - Intra-abdominal fluid collection [None]
  - Abdominal pain lower [Recovering/Resolving]

NARRATIVE: CASE EVENT DATE: 20190913
